FAERS Safety Report 8630206 (Version 3)
Quarter: 2012Q4

REPORT INFORMATION
  Report Type: 
  Country: US (occurrence: US)
  Receive Date: 20120622
  Receipt Date: 20121119
  Transmission Date: 20130627
  Serious: Yes (Hospitalization, Other)
  Sender: FDA-Public Use
  Company Number: US-PFIZER INC-2012146467

PATIENT
  Age: 12 Year
  Sex: Male
  Weight: 40.99 kg

DRUGS (5)
  1. ZARONTIN [Suspect]
     Indication: PARTIAL EPILEPSY
     Dosage: 250 mg, 2x/day
     Route: 048
     Dates: start: 20101123, end: 20101127
  2. ZARONTIN [Suspect]
     Indication: EPILEPSY
     Dosage: one 250mg capsule every morning and 2 capsules every night
     Route: 048
     Dates: start: 20101128, end: 20101216
  3. DEPAKOTE [Concomitant]
     Indication: EPILEPSY
     Dosage: 250mg one tablet in morning and 375mg tablet in evening
     Route: 048
     Dates: start: 20100127
  4. DEPAKOTE [Concomitant]
     Dosage: 500 mg, 2x/day
     Route: 048
  5. CIPRODEX [Concomitant]
     Indication: OTITIS MEDIA RECURRENT
     Dosage: UNK

REACTIONS (9)
  - Toxic epidermal necrolysis [Unknown]
  - Stevens-Johnson syndrome [Recovering/Resolving]
  - Systemic inflammatory response syndrome [Unknown]
  - Atelectasis [Recovered/Resolved]
  - Mycoplasma infection [Unknown]
  - Oral infection [Unknown]
  - Abdominal discomfort [Unknown]
  - Lymphadenitis [Recovered/Resolved]
  - Stevens-Johnson syndrome [Unknown]
